FAERS Safety Report 19522648 (Version 3)
Quarter: 2021Q3

REPORT INFORMATION
  Report Type: Spontaneous
  Country: IT (occurrence: IT)
  Receive Date: 20210712
  Receipt Date: 20210719
  Transmission Date: 20211014
  Serious: Yes (Death, Hospitalization, Other)
  Sender: FDA-Public Use
  Company Number: IT-ALXN-A202107806

PATIENT
  Age: 64 Year
  Sex: Male

DRUGS (1)
  1. SOLIRIS [Suspect]
     Active Substance: ECULIZUMAB
     Indication: ATYPICAL HAEMOLYTIC URAEMIC SYNDROME
     Dosage: 900 MG
     Route: 040
     Dates: start: 20210707

REACTIONS (5)
  - Renal failure [Fatal]
  - Thrombocytopenia [Fatal]
  - Nervous system disorder [Fatal]
  - Haemolytic anaemia [Fatal]
  - Lung disorder [Fatal]
